FAERS Safety Report 8904384 (Version 7)
Quarter: 2013Q3

REPORT INFORMATION
  Report Type: Spontaneous
  Country: US (occurrence: US)
  Receive Date: 20121112
  Receipt Date: 20130904
  Transmission Date: 20140515
  Serious: Yes (Hospitalization, Disabling, Other)
  Sender: FDA-Public Use
  Company Number: US-009507513-1211USA004326

PATIENT
  Sex: Female
  Weight: 113.38 kg

DRUGS (2)
  1. FOSAMAX [Suspect]
     Indication: OSTEOPENIA
     Dosage: UNK
     Route: 048
     Dates: start: 1995, end: 2005
  2. FOSAMAX [Suspect]
     Dosage: 70 MG, QW
     Route: 048
     Dates: start: 200404

REACTIONS (42)
  - Femur fracture [Not Recovered/Not Resolved]
  - Medical device implantation [Not Recovered/Not Resolved]
  - Procedural complication [Not Recovered/Not Resolved]
  - Medical device removal [Unknown]
  - Femur fracture [Not Recovered/Not Resolved]
  - Surgical procedure repeated [Not Recovered/Not Resolved]
  - Intramedullary rod insertion [Not Recovered/Not Resolved]
  - Bone graft [Unknown]
  - Device failure [Unknown]
  - Medical device removal [Unknown]
  - Adverse event [Unknown]
  - Arthroscopy [Unknown]
  - Cholecystectomy [Unknown]
  - Obesity surgery [Unknown]
  - Anxiety [Unknown]
  - Procedural haemorrhage [Unknown]
  - Wound haematoma [Unknown]
  - Subcutaneous haematoma [Unknown]
  - Atelectasis [Unknown]
  - Anaemia [Unknown]
  - Coagulopathy [Unknown]
  - International normalised ratio increased [Unknown]
  - Arthropathy [Unknown]
  - Intervertebral disc degeneration [Unknown]
  - Exostosis [Unknown]
  - Haemoglobin abnormal [Unknown]
  - Osteoarthritis [Unknown]
  - Hypertension [Unknown]
  - Diverticulum intestinal [Unknown]
  - Myositis ossificans [Unknown]
  - Hypercholesterolaemia [Unknown]
  - Incision site erythema [Unknown]
  - Contusion [Unknown]
  - Blood creatinine increased [Unknown]
  - Insomnia [Unknown]
  - Gastrooesophageal reflux disease [Unknown]
  - Abdominal distension [Unknown]
  - Flatulence [Unknown]
  - Pain in extremity [Unknown]
  - Dyspepsia [Unknown]
  - Constipation [Unknown]
  - Pruritus [Unknown]
